FAERS Safety Report 21568128 (Version 2)
Quarter: 2022Q4

REPORT INFORMATION
  Report Type: Spontaneous
  Country: JP (occurrence: JP)
  Receive Date: 20221108
  Receipt Date: 20221127
  Transmission Date: 20230113
  Serious: Yes (Life-Threatening, Hospitalization)
  Sender: FDA-Public Use
  Company Number: JP-TEVA-2022-JP-2824362

PATIENT
  Age: 48 Year
  Sex: Male

DRUGS (4)
  1. BISOPROLOL [Suspect]
     Active Substance: BISOPROLOL
     Indication: Basedow^s disease
     Route: 048
  2. LANDIOLOL [Suspect]
     Active Substance: LANDIOLOL
     Indication: Sinus tachycardia
     Route: 065
  3. NITROGLYCERIN [Concomitant]
     Active Substance: NITROGLYCERIN
     Indication: Chest pain
     Route: 065
  4. METHIMAZOLE [Concomitant]
     Active Substance: METHIMAZOLE
     Indication: Basedow^s disease
     Route: 065

REACTIONS (3)
  - Angina pectoris [Recovering/Resolving]
  - Ventricular fibrillation [Recovering/Resolving]
  - Long QT syndrome [Recovering/Resolving]
